FAERS Safety Report 5931926-5 (Version None)
Quarter: 2008Q4

REPORT INFORMATION
  Report Type: 
  Country: None (occurrence: None)
  Receive Date: 20081027
  Receipt Date: 20081017
  Transmission Date: 20090506
  Serious: Yes (Other)
  Sender: FDA-Public Use
  Company Number: PHHY2008CA25250

PATIENT
  Sex: Female
  Weight: 90.703 kg

DRUGS (19)
  1. CLOZARIL [Suspect]
     Dosage: 25 MG A.M. AND HS FOR ONE WEEK
     Dates: start: 20031022
  2. CLOZARIL [Suspect]
     Dosage: 50 MG AM AND HS FOR ONE MONTH
  3. CLOZARIL [Suspect]
     Dosage: 50 MG AM, 150 MG HS
  4. COGENTIN [Concomitant]
     Dosage: 2 MG AM
  5. SERAX [Concomitant]
     Dosage: 15 MG AM, 30 MG HS
  6. RABEPRAZOLE SODIUM [Concomitant]
     Dosage: 10 MG, BID
  7. ATORVASTATIN [Concomitant]
     Dosage: 20 MG HS
  8. VITAMIN B-12 [Concomitant]
     Dosage: 1 CC MONTHLY
     Route: 030
  9. CELEBREX [Concomitant]
     Dosage: 200 MG AM
  10. BLACK COHOSH [Concomitant]
     Dosage: 40 MG UPTO 2 TABS DAILY
  11. ASPIRIN [Concomitant]
     Dosage: 325 MG, PRN
  12. DOVONEX [Concomitant]
     Dosage: UNK
  13. FUCIDINE CAP [Concomitant]
     Dosage: UNK
  14. CLOTRIMAZOLE [Concomitant]
     Dosage: UNK
  15. LIPITOR [Concomitant]
     Indication: HYPERCHOLESTEROLAEMIA
     Dosage: 20 MG
     Route: 048
  16. LIPITOR [Concomitant]
     Indication: DYSLIPIDAEMIA
  17. ZYPREXA [Concomitant]
     Dosage: 5 MG AM, 7.5 MG H.S
  18. ZYPREXA [Concomitant]
     Dosage: 2.5 MG AM, 5 MG HS FOR 2 WEEKS
  19. ATROPINE [Concomitant]
     Dosage: 2 DROPS IN WATER AM AND HS

REACTIONS (9)
  - EAR INFECTION [None]
  - ECZEMA [None]
  - EOSINOPHIL COUNT ABNORMAL [None]
  - FEAR [None]
  - HAEMORRHOIDS [None]
  - HALLUCINATION, AUDITORY [None]
  - MONOCYTE COUNT DECREASED [None]
  - NEUTROPHIL COUNT DECREASED [None]
  - SALIVARY HYPERSECRETION [None]
